FAERS Safety Report 13863388 (Version 1)
Quarter: 2017Q3

REPORT INFORMATION
  Report Type: Spontaneous
  Country: US (occurrence: US)
  Receive Date: 20170814
  Receipt Date: 20170814
  Transmission Date: 20171127
  Serious: No
  Sender: FDA-Public Use
  Company Number: US-PFIZER INC-2017346787

PATIENT
  Age: 63 Year
  Sex: Male

DRUGS (1)
  1. LYRICA [Suspect]
     Active Substance: PREGABALIN
     Dosage: 75 MG, UNK (TAKE 3 PILLS A DAY; SOMETIMES 2 PILLS A DAY)

REACTIONS (2)
  - Abdominal discomfort [Recovered/Resolved]
  - Intentional product use issue [Unknown]
